FAERS Safety Report 9196239 (Version 1)
Quarter: 2013Q1

REPORT INFORMATION
  Report Type: Spontaneous
  Country: JP (occurrence: JP)
  Receive Date: 20130328
  Receipt Date: 20130328
  Transmission Date: 20140127
  Serious: Yes (Other)
  Sender: FDA-Public Use
  Company Number: JP-JNJFOC-20130310121

PATIENT
  Age: 4 Decade
  Sex: Female

DRUGS (14)
  1. RISPERIDONE [Suspect]
     Indication: BIPOLAR II DISORDER
     Route: 065
  2. ALPRAZOLAM [Suspect]
     Indication: BIPOLAR II DISORDER
     Route: 065
  3. DIAZEPAM [Suspect]
     Indication: BIPOLAR II DISORDER
     Route: 065
  4. TRIAZOLAM [Suspect]
     Indication: BIPOLAR II DISORDER
     Route: 065
  5. ESTAZOLAM [Suspect]
     Indication: BIPOLAR II DISORDER
     Route: 065
  6. LORMETAZEPAM [Suspect]
     Indication: BIPOLAR II DISORDER
     Route: 065
  7. FLURAZEPAM [Suspect]
     Indication: BIPOLAR II DISORDER
     Route: 065
  8. ZOLPIDEM [Suspect]
     Indication: BIPOLAR II DISORDER
     Route: 065
  9. BROTIZOLAM [Suspect]
     Indication: BIPOLAR II DISORDER
     Route: 065
  10. NITRAZEPAM [Suspect]
     Indication: BIPOLAR II DISORDER
     Route: 065
  11. FLUNITRAZEPAM [Suspect]
     Indication: BIPOLAR II DISORDER
     Route: 065
  12. RILMAZAFONE [Suspect]
     Indication: BIPOLAR II DISORDER
     Route: 065
  13. PAROXETINE [Suspect]
     Indication: BIPOLAR II DISORDER
     Route: 065
  14. CHLORPROMAZINE [Suspect]
     Indication: BIPOLAR II DISORDER
     Route: 065

REACTIONS (3)
  - Suicide attempt [Recovered/Resolved]
  - Condition aggravated [Recovered/Resolved]
  - Amnesia [Recovered/Resolved]
